FAERS Safety Report 6807116-0 (Version None)
Quarter: 2010Q2

REPORT INFORMATION
  Report Type: 
  Country: None (occurrence: None)
  Receive Date: 20100629
  Receipt Date: 20080716
  Transmission Date: 20101027
  Serious: No
  Sender: FDA-Public Use
  Company Number: US-PFIZER INC-2008060767

PATIENT
  Sex: Male
  Weight: 56.818 kg

DRUGS (2)
  1. VIAGRA [Suspect]
     Indication: ERECTILE DYSFUNCTION
     Dates: start: 20080101
  2. LORCET-HD [Concomitant]

REACTIONS (1)
  - SKIN IRRITATION [None]
